FAERS Safety Report 7235051-5 (Version None)
Quarter: 2011Q1

REPORT INFORMATION
  Report Type: 
  Country: None (occurrence: None)
  Receive Date: 20110120
  Receipt Date: 20110107
  Transmission Date: 20110831
  Serious: Yes (Hospitalization)
  Sender: FDA-Public Use
  Company Number: US-CELGENEUS-163-21880-11010598

PATIENT
  Sex: Female
  Weight: 90.8 kg

DRUGS (8)
  1. REVLIMID [Suspect]
     Indication: MULTIPLE MYELOMA
     Route: 048
     Dates: start: 20101201
  2. PROAIR HFA [Concomitant]
     Route: 065
  3. VELCADE [Concomitant]
     Route: 065
  4. ZOFRAN [Concomitant]
     Route: 065
  5. HYDROCHLOROTHIAZIDE [Concomitant]
     Route: 065
  6. VERAPAMIL [Concomitant]
     Route: 065
  7. DEXAMETHASONE [Concomitant]
     Route: 065
  8. ZOMETA [Concomitant]
     Route: 065

REACTIONS (6)
  - OCULAR HYPERAEMIA [None]
  - PYREXIA [None]
  - HYPERSENSITIVITY [None]
  - URTICARIA [None]
  - SWOLLEN TONGUE [None]
  - OSTEITIS [None]
